FAERS Safety Report 9494534 (Version 2)
Quarter: 2013Q4

REPORT INFORMATION
  Report Type: Spontaneous
  Country: US (occurrence: US)
  Receive Date: 20130903
  Receipt Date: 20131001
  Transmission Date: 20140711
  Serious: Yes (Other)
  Sender: FDA-Public Use
  Company Number: US-PFIZER INC-2013252094

PATIENT
  Sex: Female

DRUGS (1)
  1. LYRICA [Suspect]
     Indication: SPINAL CORD INJURY
     Dosage: 350 MG DAILY
     Dates: start: 2013

REACTIONS (10)
  - Transient ischaemic attack [Unknown]
  - Oxygen saturation decreased [Unknown]
  - Amnesia [Unknown]
  - Cognitive disorder [Unknown]
  - Memory impairment [Unknown]
  - Dysarthria [Unknown]
  - Headache [Unknown]
  - Hypertension [Unknown]
  - Disturbance in attention [Unknown]
  - Visual impairment [Unknown]
